FAERS Safety Report 21229277 (Version 2)
Quarter: 2023Q1

REPORT INFORMATION
  Report Type: Report from Study
  Country: US (occurrence: US)
  Receive Date: 20220818
  Receipt Date: 20230214
  Transmission Date: 20230418
  Serious: Yes (Hospitalization, Other)
  Sender: FDA-Public Use
  Company Number: US-ABBVIE-22K-163-4504759-00

PATIENT
  Age: 70 Year
  Sex: Male

DRUGS (1)
  1. IMBRUVICA [Suspect]
     Active Substance: IBRUTINIB
     Indication: Product used for unknown indication
     Route: 048
     Dates: end: 20221024

REACTIONS (3)
  - Gastric ulcer perforation [Recovered/Resolved]
  - Transfusion [Unknown]
  - Gastric haemorrhage [Unknown]

NARRATIVE: CASE EVENT DATE: 20220731
